FAERS Safety Report 4460704-1 (Version None)
Quarter: 2004Q3

REPORT INFORMATION
  Report Type: 
  Country: None (occurrence: None)
  Receive Date: 20040928
  Receipt Date: 20040720
  Transmission Date: 20050211
  Serious: No
  Sender: FDA-Public Use
  Company Number: US-GLAXOSMITHKLINE-A0519055A

PATIENT
  Age: 41 Year
  Sex: Female
  Weight: 59.1 kg

DRUGS (2)
  1. ADVAIR DISKUS 100/50 [Suspect]
     Route: 065
  2. NO CONCURRENT MEDICATION [Concomitant]

REACTIONS (1)
  - GINGIVAL RECESSION [None]
